FAERS Safety Report 5540822-7 (Version None)
Quarter: 2007Q4

REPORT INFORMATION
  Report Type: 
  Country: None (occurrence: None)
  Receive Date: 20071129
  Receipt Date: 20070430
  Transmission Date: 20080405
  Serious: Yes (Other)
  Sender: FDA-Public Use
  Company Number: US200703003201

PATIENT
  Age: 53 Year
  Sex: Female
  Weight: 128.8 kg

DRUGS (7)
  1. ZYPREXA [Suspect]
     Indication: ATTENTION DEFICIT/HYPERACTIVITY DISORDER
     Dosage: 20 MG,; 10 MG
     Dates: start: 20000101
  2. ABILIFY [Concomitant]
  3. EFFEXOR XR [Concomitant]
  4. ADDERALL XR (AMFETAMINE ASPARTATE, AMFETAMINE SULFATE, DEXAMFETAMINE S [Concomitant]
  5. PROZAC [Concomitant]
  6. LAMICTAL [Concomitant]
  7. WELLBUTRIN [Concomitant]

REACTIONS (6)
  - DEPRESSION [None]
  - DISTURBANCE IN ATTENTION [None]
  - DRUG WITHDRAWAL SYNDROME [None]
  - MANIA [None]
  - MUSCLE SPASMS [None]
  - WEIGHT INCREASED [None]
